FAERS Safety Report 7384375-X (Version None)
Quarter: 2011Q1

REPORT INFORMATION
  Report Type: 
  Country: None (occurrence: None)
  Receive Date: 20110322
  Receipt Date: 20110314
  Transmission Date: 20110831
  Serious: Yes (Disabling, Other)
  Sender: FDA-Public Use
  Company Number: DSA_44900_2011

PATIENT
  Sex: Female
  Weight: 56.6996 kg

DRUGS (6)
  1. DIAZEPAM [Concomitant]
  2. CLONAZEPAM [Concomitant]
  3. GABAPENTIN [Concomitant]
  4. XENAZINE [Suspect]
     Indication: DYSTONIA
     Dosage: 25 MG, TABLET, 1/2 TABLET, TID, ORAL
     Route: 048
     Dates: start: 20110101, end: 20110201
  5. SEASONIQUE [Concomitant]
  6. DOXYCYCLINE [Concomitant]

REACTIONS (12)
  - FEELING DRUNK [None]
  - DIARRHOEA [None]
  - PARKINSONISM [None]
  - DYSTONIA [None]
  - DYSPHAGIA [None]
  - ANXIETY [None]
  - DYSARTHRIA [None]
  - DROOLING [None]
  - TORTICOLLIS [None]
  - GAZE PALSY [None]
  - CONDITION AGGRAVATED [None]
  - PHOTOPHOBIA [None]
